FAERS Safety Report 5349318-9 (Version None)
Quarter: 2007Q2

REPORT INFORMATION
  Report Type: 
  Country: None (occurrence: None)
  Receive Date: 20070607
  Receipt Date: 20070531
  Transmission Date: 20071010
  Serious: Yes (Hospitalization)
  Sender: FDA-Public Use
  Company Number: B0473707A

PATIENT
  Age: 72 Year
  Sex: Male
  Weight: 62 kg

DRUGS (4)
  1. WELLVONE [Suspect]
     Route: 048
     Dates: start: 20070116, end: 20070426
  2. MABTHERA [Suspect]
     Dosage: 630MG CYCLIC
     Route: 042
     Dates: start: 20050329, end: 20070213
  3. FLUDARABINE PHOSPHATE [Concomitant]
     Route: 048
     Dates: start: 20060908, end: 20070213
  4. ENDOXAN [Concomitant]
     Dosage: 250MG CYCLIC
     Route: 042
     Dates: start: 20060908, end: 20070213

REACTIONS (2)
  - AGRANULOCYTOSIS [None]
  - NEUTROPENIA [None]
